FAERS Safety Report 7675486-X (Version None)
Quarter: 2011Q3

REPORT INFORMATION
  Report Type: 
  Country: None (occurrence: None)
  Receive Date: 20110810
  Receipt Date: 20110804
  Transmission Date: 20111222
  Serious: Yes (Disabling, Other)
  Sender: FDA-Public Use
  Company Number: FR-PFIZER INC-2011085954

PATIENT
  Age: 54 Year
  Sex: Female
  Weight: 76 kg

DRUGS (3)
  1. ZOLOFT [Suspect]
     Dosage: 50 MG, 2X/DAY
     Dates: start: 20100101, end: 20110101
  2. HOMEOPATICS NOS [Concomitant]
     Indication: ASTHMA
     Dosage: UNK
  3. ZOLOFT [Suspect]
     Indication: DEPRESSION
     Dosage: 50 MG, 1X/DAY
     Dates: start: 20100608, end: 20100101

REACTIONS (33)
  - GASTRIC ULCER [None]
  - ABDOMINAL PAIN UPPER [None]
  - MUSCULAR WEAKNESS [None]
  - WEIGHT INCREASED [None]
  - RESPIRATORY RATE DECREASED [None]
  - ASPHYXIA [None]
  - GAIT DISTURBANCE [None]
  - SUICIDAL IDEATION [None]
  - MUSCLE CONTRACTURE [None]
  - DYSARTHRIA [None]
  - HYPOAESTHESIA [None]
  - ABNORMAL BEHAVIOUR [None]
  - EPISTAXIS [None]
  - PARAESTHESIA [None]
  - SKIN DISORDER [None]
  - BACK PAIN [None]
  - DISTURBANCE IN ATTENTION [None]
  - COUGH [None]
  - RHINORRHOEA [None]
  - VOMITING [None]
  - WEIGHT DECREASED [None]
  - URINARY INCONTINENCE [None]
  - MIGRAINE [None]
  - TREMOR [None]
  - ENURESIS [None]
  - MOUTH ULCERATION [None]
  - THROAT TIGHTNESS [None]
  - WHEEZING [None]
  - OCULAR DISCOMFORT [None]
  - TINNITUS [None]
  - RESPIRATORY RATE INCREASED [None]
  - DYSPNOEA [None]
  - MUSCLE TIGHTNESS [None]
